FAERS Safety Report 8461388-8 (Version None)
Quarter: 2012Q2

REPORT INFORMATION
  Report Type: 
  Country: None (occurrence: None)
  Receive Date: 20120625
  Receipt Date: 20120612
  Transmission Date: 20120825
  Serious: Yes (Hospitalization)
  Sender: FDA-Public Use
  Company Number: US-CELGENEUS-163-21880-12062379

PATIENT
  Sex: Male

DRUGS (8)
  1. FERROUS SULFATE TAB [Concomitant]
     Dosage: 325
     Route: 065
  2. GLYBURIDE [Concomitant]
     Dosage: 5
     Route: 065
  3. ACYCLOVIR [Concomitant]
     Dosage: 400
     Route: 058
  4. DEXAMETHASONE [Concomitant]
     Route: 065
     Dates: end: 20120501
  5. REVLIMID [Suspect]
     Indication: MULTIPLE MYELOMA
     Dosage: 15 MILLIGRAM
     Route: 048
     Dates: start: 20120401
  6. LEVEMIR [Concomitant]
     Dosage: 5 UNITS
     Route: 058
  7. SODIUM CHLORIDE [Concomitant]
     Route: 065
  8. ASPIRIN [Concomitant]
     Dosage: 81
     Route: 065

REACTIONS (2)
  - HYPERKALAEMIA [None]
  - OBSTRUCTIVE UROPATHY [None]
